FAERS Safety Report 7743792-6 (Version None)
Quarter: 2011Q3

REPORT INFORMATION
  Report Type: 
  Country: None (occurrence: None)
  Receive Date: 20110912
  Receipt Date: 20110830
  Transmission Date: 20111222
  Serious: Yes (Hospitalization)
  Sender: FDA-Public Use
  Company Number: US-GLAXOSMITHKLINE-A0875331A

PATIENT
  Age: 70 Year
  Sex: Male
  Weight: 97.7 kg

DRUGS (14)
  1. TRICOR [Concomitant]
  2. UROXATRAL [Concomitant]
  3. ZOLADEX [Concomitant]
  4. FLOMAX [Concomitant]
  5. AMIODARONE HCL [Concomitant]
  6. CRESTOR [Concomitant]
  7. ALTACE [Concomitant]
  8. ASPIRIN [Concomitant]
  9. ZETIA [Concomitant]
  10. TOPROL-XL [Concomitant]
  11. AVANDIA [Suspect]
     Indication: TYPE 2 DIABETES MELLITUS
     Dosage: 8MG PER DAY
     Route: 048
     Dates: end: 20070529
  12. METOPROLOL SUCCINATE [Concomitant]
  13. FOLIC ACID [Concomitant]
  14. COUMADIN [Concomitant]

REACTIONS (3)
  - ATRIAL FIBRILLATION [None]
  - SUPRAVENTRICULAR TACHYCARDIA [None]
  - CORONARY ARTERY DISEASE [None]
